FAERS Safety Report 14974607 (Version 3)
Quarter: 2018Q4

REPORT INFORMATION
  Report Type: Spontaneous
  Country: FR (occurrence: FR)
  Receive Date: 20180605
  Receipt Date: 20181003
  Transmission Date: 20190204
  Serious: Yes (Death)
  Sender: FDA-Public Use
  Company Number: FR-ELI_LILLY_AND_COMPANY-FR201805014833

PATIENT
  Age: 64 Year
  Sex: Male
  Weight: 68 kg

DRUGS (3)
  1. INNOHEP [Concomitant]
     Active Substance: TINZAPARIN SODIUM
     Indication: PRODUCT USED FOR UNKNOWN INDICATION
     Dosage: UNK UNK, UNKNOWN
     Route: 065
  2. ALIMTA [Suspect]
     Active Substance: PEMETREXED DISODIUM
     Indication: LUNG ADENOCARCINOMA
     Dosage: 900 MG, DAILY
     Route: 042
     Dates: start: 20180315, end: 20180405
  3. CARBOPLATIN HOSPIRA [Suspect]
     Active Substance: CARBOPLATIN
     Indication: LUNG ADENOCARCINOMA
     Dosage: 600 MG, CYCLICAL
     Route: 042
     Dates: start: 20180315, end: 20180405

REACTIONS (8)
  - Inappropriate schedule of product administration [Unknown]
  - Off label use [Unknown]
  - Rash [Fatal]
  - Diarrhoea [Fatal]
  - Acute kidney injury [Fatal]
  - Gastrointestinal necrosis [Fatal]
  - Mucosal inflammation [Fatal]
  - Overdose [Unknown]

NARRATIVE: CASE EVENT DATE: 20180315
